FAERS Safety Report 25783921 (Version 1)
Quarter: 2025Q3

REPORT INFORMATION
  Report Type: Spontaneous
  Country: SG (occurrence: SG)
  Receive Date: 20250910
  Receipt Date: 20250910
  Transmission Date: 20251021
  Serious: Yes (Hospitalization, Other)
  Sender: NOVARTIS
  Company Number: SG-002147023-NVSC2025SG138031

PATIENT
  Age: 74 Year
  Sex: Female

DRUGS (2)
  1. IMATINIB [Suspect]
     Active Substance: IMATINIB
     Indication: Chronic myeloid leukaemia
     Route: 065
  2. ALENDRONATE [Interacting]
     Active Substance: ALENDRONATE SODIUM
     Indication: Osteoporosis
     Route: 048

REACTIONS (1)
  - Atypical femur fracture [Recovering/Resolving]
